FAERS Safety Report 5811507-4 (Version None)
Quarter: 2008Q3

REPORT INFORMATION
  Report Type: 
  Country: None (occurrence: None)
  Receive Date: 20080711
  Receipt Date: 20080711
  Transmission Date: 20090109
  Serious: Yes (Other)
  Sender: FDA-Public Use
  Company Number: None

PATIENT
  Sex: Female
  Weight: 79.3795 kg

DRUGS (5)
  1. LITHIUM CARBONATE [Suspect]
     Indication: ANXIETY
  2. LITHIUM CARBONATE [Suspect]
     Indication: DEPRESSION
  3. GEODON [Suspect]
     Indication: OBSESSIVE-COMPULSIVE DISORDER
  4. RISPERDAL [Suspect]
     Dates: start: 19990101, end: 20030101
  5. CALLITEA, WOLFBANE [Suspect]

REACTIONS (2)
  - PANIC ATTACK [None]
  - PSYCHOTIC DISORDER [None]
